FAERS Safety Report 6584643-5 (Version None)
Quarter: 2010Q1

REPORT INFORMATION
  Report Type: 
  Country: None (occurrence: None)
  Receive Date: 20100212
  Receipt Date: 20100212
  Transmission Date: 20100710
  Serious: No
  Sender: FDA-Public Use
  Company Number: None

PATIENT
  Age: 85 Year
  Sex: Male
  Weight: 79.9 kg

DRUGS (1)
  1. HYDRALAZINE HCL [Suspect]
     Indication: HYPERTENSION
     Dosage: 100 MG TID PO
     Route: 048
     Dates: start: 20091125, end: 20091125

REACTIONS (2)
  - ANGIOEDEMA [None]
  - NASAL CONGESTION [None]
